FAERS Safety Report 6567736-8 (Version None)
Quarter: 2010Q1

REPORT INFORMATION
  Report Type: 
  Country: None (occurrence: None)
  Receive Date: 20100203
  Receipt Date: 20100127
  Transmission Date: 20100710
  Serious: Yes (Other)
  Sender: FDA-Public Use
  Company Number: US-RB-001854-10

PATIENT
  Age: 79 Year
  Sex: Female

DRUGS (2)
  1. MUCINEX DM [Suspect]
     Dosage: TOOK 1 TABLET EVERY 12 HOURS FOR 9.5 DAYS.
     Route: 048
     Dates: start: 20100118
  2. MUCINEX DM [Suspect]
     Dosage: TOOK 2 TABLETS THIS MORNING
     Route: 048
     Dates: start: 20100123

REACTIONS (5)
  - ACCIDENTAL OVERDOSE [None]
  - DIZZINESS [None]
  - INCORRECT DRUG ADMINISTRATION DURATION [None]
  - LIP DISORDER [None]
  - TONGUE OEDEMA [None]
